FAERS Safety Report 7676519-7 (Version None)
Quarter: 2011Q3

REPORT INFORMATION
  Report Type: 
  Country: None (occurrence: None)
  Receive Date: 20110811
  Receipt Date: 20110729
  Transmission Date: 20111222
  Serious: Yes (Hospitalization)
  Sender: FDA-Public Use
  Company Number: DE-UCBSA-009329

PATIENT
  Sex: Female
  Weight: 50 kg

DRUGS (7)
  1. CALCIUM CARBONATE [Concomitant]
     Indication: OSTEOPOROSIS
  2. TORSEMIDE [Concomitant]
     Indication: CARDIAC FAILURE
  3. OMEPRAZOLE [Concomitant]
     Indication: HIATUS HERNIA
  4. CERTOLIZUMAB PEGOL [Suspect]
     Indication: RHEUMATOID ARTHRITIS
     Route: 058
     Dates: start: 20100315, end: 20100315
  5. FENTANYL [Concomitant]
     Indication: RHEUMATOID ARTHRITIS
     Dosage: 25?G/H EVERY 3 DAYS
  6. REKAWAN [Concomitant]
     Indication: HYPOKALAEMIA
  7. PREDNISOLONE [Concomitant]
     Indication: RHEUMATOID ARTHRITIS

REACTIONS (1)
  - PNEUMONIA [None]
